FAERS Safety Report 9434224 (Version 3)
Quarter: 2013Q3

REPORT INFORMATION
  Report Type: Spontaneous
  Country: JP (occurrence: JP)
  Receive Date: 20130801
  Receipt Date: 20130828
  Transmission Date: 20140515
  Serious: Yes (Hospitalization, Disabling)
  Sender: FDA-Public Use
  Company Number: JP-ASTRAZENECA-2013SE57269

PATIENT
  Age: 27536 Day
  Sex: Female
  Weight: 49 kg

DRUGS (5)
  1. NEXIUM [Suspect]
     Indication: GASTROOESOPHAGEAL REFLUX DISEASE
     Route: 048
     Dates: start: 20130506, end: 20130705
  2. CRESTOR [Concomitant]
     Indication: DYSLIPIDAEMIA
     Route: 048
  3. BLOPRESS [Concomitant]
     Indication: HYPERTENSION
     Route: 048
  4. FLUITRAN [Concomitant]
     Indication: HYPERTENSION
     Route: 048
  5. FLAVERIC [Concomitant]
     Indication: COUGH
     Route: 048
     Dates: end: 20130705

REACTIONS (1)
  - Platelet count decreased [Recovered/Resolved]
